FAERS Safety Report 17391274 (Version 1)
Quarter: 2020Q1

REPORT INFORMATION
  Report Type: Spontaneous
  Country: FR (occurrence: FR)
  Receive Date: 20200207
  Receipt Date: 20200207
  Transmission Date: 20200409
  Serious: Yes (Hospitalization)
  Sender: FDA-Public Use
  Company Number: FR-MYLANLABS-2020M1013521

PATIENT
  Age: 55 Year
  Sex: Male

DRUGS (5)
  1. LOVENOX [Suspect]
     Active Substance: ENOXAPARIN SODIUM
     Indication: ACUTE CORONARY SYNDROME
     Dosage: 7000 UI/J ? 6H
     Route: 058
     Dates: start: 20191125, end: 20191125
  2. BISOCE 1,25 MG, COMPRIM? PELLICUL? [Suspect]
     Active Substance: BISOPROLOL FUMARATE
     Indication: CARDIAC FAILURE
     Dosage: 1-0-0
     Route: 048
     Dates: start: 20191125, end: 20191125
  3. BRILIQUE [Concomitant]
     Active Substance: TICAGRELOR
     Indication: ACUTE CORONARY SYNDROME
     Dosage: 1-0-1
     Route: 048
     Dates: start: 20191125
  4. KARDEGIC [Concomitant]
     Active Substance: ASPIRIN DL-LYSINE
     Indication: ACUTE CORONARY SYNDROME
     Dosage: 1-0-1
     Route: 048
     Dates: start: 20191125
  5. AGRASTAT [Suspect]
     Active Substance: TIROFIBAN HYDROCHLORIDE
     Indication: ACUTE CORONARY SYNDROME
     Dosage: 12ML/H PENDANT 7H
     Route: 042
     Dates: start: 20191124, end: 20191125

REACTIONS (1)
  - Erythema [Recovering/Resolving]

NARRATIVE: CASE EVENT DATE: 20191125
